FAERS Safety Report 4828298-6 (Version None)
Quarter: 2005Q4

REPORT INFORMATION
  Report Type: 
  Country: None (occurrence: None)
  Receive Date: 20051115
  Receipt Date: 20050803
  Transmission Date: 20060501
  Serious: Yes (Other)
  Sender: FDA-Public Use
  Company Number: 2005AP04402

PATIENT
  Age: 64 Year
  Sex: Male

DRUGS (9)
  1. MEROPEN [Suspect]
     Indication: PNEUMONIA
     Route: 041
     Dates: start: 20050420, end: 20050425
  2. MEROPEN [Suspect]
     Route: 041
     Dates: start: 20050428, end: 20050511
  3. TARGOCID [Suspect]
     Indication: PNEUMONIA
     Route: 041
     Dates: start: 20050425, end: 20050511
  4. AMINOTRIPA NO 1 [Concomitant]
     Route: 041
     Dates: start: 20050408, end: 20050427
  5. ALBUMIN (HUMAN) [Concomitant]
     Dosage: IV RAPID
     Route: 042
     Dates: start: 20050413, end: 20050415
  6. PREDONINE [Concomitant]
     Indication: INTERSTITIAL LUNG DISEASE
     Route: 042
     Dates: start: 20050422, end: 20050507
  7. AMINOFLUID [Concomitant]
     Route: 041
     Dates: start: 20050428, end: 20050509
  8. SOLDEM 1 [Concomitant]
     Route: 041
     Dates: start: 20050428, end: 20050509
  9. DIGOSIN [Concomitant]
     Indication: ATRIAL FIBRILLATION
     Route: 041
     Dates: start: 20050428, end: 20050511

REACTIONS (1)
  - HYPONATRAEMIA [None]
